FAERS Safety Report 7943444-3 (Version None)
Quarter: 2011Q4

REPORT INFORMATION
  Report Type: 
  Country: None (occurrence: None)
  Receive Date: 20111128
  Receipt Date: 20111121
  Transmission Date: 20120403
  Serious: Yes (Hospitalization, Other)
  Sender: FDA-Public Use
  Company Number: US-TEVA-310115USA

PATIENT
  Age: 22 Year
  Sex: Male

DRUGS (2)
  1. CARBAMAZEPINE [Suspect]
  2. QUETIAPINE [Suspect]

REACTIONS (2)
  - INTESTINAL OBSTRUCTION [None]
  - OVERDOSE [None]
